FAERS Safety Report 9008713 (Version 1)
Quarter: 2020Q3

REPORT INFORMATION
  Report Type: Report from Study
  Country: NI (occurrence: NI)
  Receive Date: 20130111
  Receipt Date: 20130111
  Transmission Date: 20201104
  Serious: Yes (Death, Other)
  Sender: FDA-Public Use
  Company Number: NI-ROCHE-1178614

PATIENT
  Age: 66 Year
  Sex: Female

DRUGS (1)
  1. IBANDRONIC ACID. [Suspect]
     Active Substance: IBANDRONIC ACID
     Indication: OSTEOPOROSIS
     Route: 048
     Dates: start: 20100428, end: 201203

REACTIONS (3)
  - Colon cancer [Fatal]
  - Pulmonary fibrosis [Unknown]
  - Respiratory failure [Unknown]

NARRATIVE: CASE EVENT DATE: 20120408
